FAERS Safety Report 17435367 (Version 2)
Quarter: 2021Q3

REPORT INFORMATION
  Report Type: Report from Study
  Country: DE (occurrence: DE)
  Receive Date: 20200216
  Receipt Date: 20210726
  Transmission Date: 20211014
  Serious: Yes (Hospitalization)
  Sender: FDA-Public Use
  Company Number: DE-BIOGEN-2020BI00837978

PATIENT
  Age: 48 Year
  Sex: Female

DRUGS (2)
  1. VITAMIN C [Concomitant]
     Active Substance: ASCORBIC ACID
     Indication: PROPHYLAXIS
     Route: 065
  2. TECFIDERA [Suspect]
     Active Substance: DIMETHYL FUMARATE
     Indication: MULTIPLE SCLEROSIS
     Route: 048
     Dates: start: 20150228, end: 2020

REACTIONS (4)
  - Neuralgia [Recovered/Resolved]
  - Bone pain [Recovered/Resolved]
  - Wrist fracture [Recovered/Resolved with Sequelae]
  - Myalgia [Recovered/Resolved]

NARRATIVE: CASE EVENT DATE: 20191217
